FAERS Safety Report 14019291 (Version 1)
Quarter: 2017Q3

REPORT INFORMATION
  Report Type: Spontaneous
  Country: US (occurrence: US)
  Receive Date: 20170928
  Receipt Date: 20170928
  Transmission Date: 20171128
  Serious: No
  Sender: FDA-Public Use
  Company Number: US-BION-006280

PATIENT
  Sex: Male

DRUGS (1)
  1. EQUATE 2 MG (LOPERAMIDE HYDROCHLORIDE) [Suspect]
     Active Substance: LOPERAMIDE HYDROCHLORIDE
     Indication: DIARRHOEA

REACTIONS (1)
  - Drug ineffective [Not Recovered/Not Resolved]
